FAERS Safety Report 9559426 (Version 1)
Quarter: 2013Q3

REPORT INFORMATION
  Report Type: Spontaneous
  Country: DE (occurrence: DE)
  Receive Date: 20130927
  Receipt Date: 20130927
  Transmission Date: 20140515
  Serious: Yes (Other)
  Sender: FDA-Public Use
  Company Number: DE-JNJFOC-20130913078

PATIENT
  Age: 64 Year
  Sex: Female
  Weight: 81.18 kg

DRUGS (10)
  1. XARELTO [Suspect]
     Indication: CEREBROVASCULAR ACCIDENT PROPHYLAXIS
     Route: 065
     Dates: start: 20130717, end: 20130813
  2. XARELTO [Suspect]
     Indication: ATRIAL FIBRILLATION
     Route: 065
     Dates: start: 20130717, end: 20130813
  3. NEBILET [Concomitant]
     Route: 065
  4. THYRONAJOD [Concomitant]
     Route: 065
  5. ATORVASTATIN [Concomitant]
     Route: 065
  6. DEKRISTOL [Concomitant]
     Route: 065
  7. TORASEMIDE [Concomitant]
     Route: 065
  8. FENOFIBRATE [Concomitant]
     Route: 065
  9. VALSARTAN [Concomitant]
     Route: 065
  10. MIRTAZAPIN [Concomitant]
     Route: 065

REACTIONS (2)
  - Haemorrhage [Recovered/Resolved]
  - Oedema peripheral [Recovered/Resolved]
